FAERS Safety Report 10143198 (Version 1)
Quarter: 2014Q2

REPORT INFORMATION
  Report Type: Spontaneous
  Country: US (occurrence: US)
  Receive Date: 20140430
  Receipt Date: 20140430
  Transmission Date: 20141212
  Serious: Yes (Hospitalization)
  Sender: FDA-Public Use
  Company Number: US-ASTRAZENECA-2014SE27930

PATIENT
  Sex: Male

DRUGS (11)
  1. SEROQUEL [Suspect]
     Route: 048
  2. FENTANYL [Interacting]
     Route: 065
  3. FENTANYL [Interacting]
     Dosage: EXTRA DOSE
     Route: 065
  4. FENTANYL [Interacting]
     Dosage: REDUCED
     Route: 065
  5. FENTANYL [Interacting]
     Dosage: INCREASED TO 100
     Route: 065
  6. ELAVIL [Interacting]
     Route: 065
  7. CHANTIX [Interacting]
     Route: 065
  8. TRILEPTAL [Interacting]
     Route: 065
  9. OXYCODONE [Interacting]
     Route: 065
  10. RESTORIL [Interacting]
     Route: 065
  11. LYRICA [Interacting]
     Route: 065
     Dates: start: 20120511

REACTIONS (2)
  - Drug interaction [Unknown]
  - Unresponsive to stimuli [Unknown]
